FAERS Safety Report 13546086 (Version 1)
Quarter: 2017Q2

REPORT INFORMATION
  Report Type: Spontaneous
  Country: US (occurrence: US)
  Receive Date: 20170514
  Receipt Date: 20170514
  Transmission Date: 20170830
  Serious: Yes (Other)
  Sender: FDA-Public Use
  Company Number: None

PATIENT
  Age: 38 Year
  Sex: Female
  Weight: 55.35 kg

DRUGS (3)
  1. GADOTERATE MEGLUMINE [Suspect]
     Active Substance: GADOTERATE MEGLUMINE
     Indication: SCAN WITH CONTRAST
     Dosage: ?          OTHER FREQUENCY:ONCE;?
     Route: 042
     Dates: start: 20170428, end: 20170428
  2. PENTASA [Concomitant]
     Active Substance: MESALAMINE
  3. VITAMIN D [Concomitant]
     Active Substance: CHOLECALCIFEROL

REACTIONS (11)
  - Pain [None]
  - Headache [None]
  - Joint crepitation [None]
  - Muscle tightness [None]
  - Arthralgia [None]
  - Muscle twitching [None]
  - Sleep disorder [None]
  - Drug interaction [None]
  - Joint range of motion decreased [None]
  - Musculoskeletal stiffness [None]
  - Musculoskeletal pain [None]

NARRATIVE: CASE EVENT DATE: 20170428
